FAERS Safety Report 16628444 (Version 1)
Quarter: 2019Q3

REPORT INFORMATION
  Report Type: Spontaneous
  Country: US (occurrence: US)
  Receive Date: 20190612
  Receipt Date: 20190612
  Transmission Date: 20191004
  Serious: Yes (Hospitalization)
  Sender: FDA-Public Use
  Company Number: None

PATIENT
  Age: 72 Year
  Sex: Male

DRUGS (14)
  1. ADCIRCA [Suspect]
     Active Substance: TADALAFIL
     Indication: PULMONARY ARTERIAL HYPERTENSION
     Route: 048
     Dates: start: 20190201
  2. POT CHLORIDE [Concomitant]
     Active Substance: POTASSIUM CHLORIDE
  3. PANTOPRAZOLE [Concomitant]
     Active Substance: PANTOPRAZOLE
  4. PRAVASTATIN. [Concomitant]
     Active Substance: PRAVASTATIN
  5. SYNTHROID [Concomitant]
     Active Substance: LEVOTHYROXINE SODIUM
  6. TORSEMIDE. [Concomitant]
     Active Substance: TORSEMIDE
  7. BUDESONIDE. [Concomitant]
     Active Substance: BUDESONIDE
  8. FUROSMIDE [Concomitant]
  9. ELIQUIS [Concomitant]
     Active Substance: APIXABAN
  10. NIFEDIPINE. [Concomitant]
     Active Substance: NIFEDIPINE
  11. ESCITALOPRAM [Concomitant]
     Active Substance: ESCITALOPRAM OXALATE
  12. LETAIRIS [Concomitant]
     Active Substance: AMBRISENTAN
  13. METOLAZONE. [Concomitant]
     Active Substance: METOLAZONE
  14. SPIRONOLACT [Concomitant]
     Active Substance: SPIRONOLACTONE

REACTIONS (1)
  - Hospitalisation [None]

NARRATIVE: CASE EVENT DATE: 201905
